FAERS Safety Report 23770197 (Version 3)
Quarter: 2024Q2

REPORT INFORMATION
  Report Type: Spontaneous
  Country: US (occurrence: US)
  Receive Date: 20240422
  Receipt Date: 20240430
  Transmission Date: 20240716
  Serious: No
  Sender: FDA-Public Use
  Company Number: US-PFIZER INC-202400060692

PATIENT
  Age: 15 Year
  Sex: Female
  Weight: 58.51 kg

DRUGS (4)
  1. OXBRYTA [Suspect]
     Active Substance: VOXELOTOR
     Indication: Sickle cell disease
     Dosage: 1500 MG (3 TABLETS OF 500 MG), 1X/DAY
     Route: 048
     Dates: start: 20230704
  2. OXBRYTA [Suspect]
     Active Substance: VOXELOTOR
     Dosage: UNK, 3X/DAY (THREE PILLS/THREE TIMES A DAY)
  3. OXBRYTA [Suspect]
     Active Substance: VOXELOTOR
     Dosage: 1500 MG (3 TABLETS OF 500 MG), 1X/DAY
     Route: 048
  4. HYDROXYUREA [Concomitant]
     Active Substance: HYDROXYUREA
     Dosage: UNK
     Dates: start: 202304

REACTIONS (7)
  - Product prescribing error [Unknown]
  - Off label use [Unknown]
  - Fatigue [Unknown]
  - Dizziness [Unknown]
  - Nausea [Unknown]
  - Vomiting [Unknown]
  - Back pain [Unknown]
